FAERS Safety Report 24882509 (Version 1)
Quarter: 2025Q1

REPORT INFORMATION
  Report Type: Spontaneous
  Country: US (occurrence: None)
  Receive Date: 20250123
  Receipt Date: 20250123
  Transmission Date: 20250409
  Serious: Yes (Hospitalization)
  Sender: FDA-CTU
  Company Number: None

PATIENT
  Age: 64 Year
  Sex: Female

DRUGS (2)
  1. BRAFTOVI [Suspect]
     Active Substance: ENCORAFENIB
     Indication: Malignant melanoma
     Dosage: FREQUENCY : DAILY;?
     Route: 048
  2. SERTRALINE [Suspect]
     Active Substance: SERTRALINE HYDROCHLORIDE

REACTIONS (10)
  - Muscle spasms [None]
  - Back pain [None]
  - Tinnitus [None]
  - Large intestinal ulcer [None]
  - Eye disorder [None]
  - Taste disorder [None]
  - Nausea [None]
  - Fatigue [None]
  - Decreased appetite [None]
  - Insomnia [None]
